FAERS Safety Report 9138047 (Version 1)
Quarter: 2013Q1

REPORT INFORMATION
  Report Type: Spontaneous
  Country: US (occurrence: US)
  Receive Date: 20130304
  Receipt Date: 20130304
  Transmission Date: 20140127
  Serious: No
  Sender: FDA-Public Use
  Company Number: US-ABBOTT-12P-163-0924523-00

PATIENT
  Sex: Male

DRUGS (2)
  1. ANDROGEL 1% [Suspect]
     Indication: PRODUCT USED FOR UNKNOWN INDICATION
  2. ANDROGEL 1% [Suspect]

REACTIONS (2)
  - Blood testosterone abnormal [Unknown]
  - Inappropriate schedule of drug administration [Unknown]
